FAERS Safety Report 6703537-5 (Version None)
Quarter: 2010Q2

REPORT INFORMATION
  Report Type: 
  Country: None (occurrence: None)
  Receive Date: 20100430
  Receipt Date: 20100421
  Transmission Date: 20101027
  Serious: Yes (Death)
  Sender: FDA-Public Use
  Company Number: IT-BRISTOL-MYERS SQUIBB COMPANY-15001688

PATIENT
  Age: 70 Year
  Sex: Male

DRUGS (2)
  1. ERBITUX [Suspect]
     Indication: NASOPHARYNGEAL CANCER
     Dosage: ERBITUX 5 MG/ML
     Route: 042
     Dates: start: 20091228, end: 20100210
  2. RADIATION THERAPY [Suspect]
     Indication: NASOPHARYNGEAL CANCER

REACTIONS (1)
  - TOXIC EPIDERMAL NECROLYSIS [None]
